FAERS Safety Report 21796384 (Version 1)
Quarter: 2022Q4

REPORT INFORMATION
  Report Type: Other
  Country: US (occurrence: US)
  Receive Date: 20221229
  Receipt Date: 20221229
  Transmission Date: 20230112
  Serious: No
  Sender: FDA-Public Use
  Company Number: US-Dermavant-000165

PATIENT

DRUGS (1)
  1. TAPINAROF [Suspect]
     Active Substance: TAPINAROF

REACTIONS (1)
  - Dermatitis contact [Unknown]
